FAERS Safety Report 24242029 (Version 1)
Quarter: 2024Q3

REPORT INFORMATION
  Report Type: Spontaneous
  Country: GB (occurrence: GB)
  Receive Date: 20240823
  Receipt Date: 20240823
  Transmission Date: 20241017
  Serious: Yes (Other)
  Sender: DR REDDYS
  Company Number: None

PATIENT
  Age: 82 Year
  Sex: Male
  Weight: 74 kg

DRUGS (15)
  1. PREGABALIN [Suspect]
     Active Substance: PREGABALIN
     Indication: Ill-defined disorder
     Dosage: PREGABALIN 25MG CAPSULES
     Dates: start: 20240805
  2. QUETIAPINE [Concomitant]
     Active Substance: QUETIAPINE
     Indication: Ill-defined disorder
     Dosage: 1 TABLET?TPP YC - PLEASE RECLASSIFY
     Dates: start: 20240620, end: 20240717
  3. MACROGOL COMPOUND [Concomitant]
     Indication: Ill-defined disorder
     Dosage: 1-2 SACHET??TPP YC - PLEASE RECLASSIFY
     Dates: start: 20240531, end: 20240620
  4. MIRTAZAPINE [Concomitant]
     Active Substance: MIRTAZAPINE
     Indication: Ill-defined disorder
     Dosage: 1 TABLET??TPP YC - PLEASE RECLASSIFY
     Dates: start: 20230810
  5. DIAZEPAM [Concomitant]
     Active Substance: DIAZEPAM
     Indication: Ill-defined disorder
     Dosage: 1 TABLET??TPP YC - PLEASE RECLASSIFY
     Dates: start: 20240717
  6. OLANZAPINE [Concomitant]
     Active Substance: OLANZAPINE
     Indication: Ill-defined disorder
     Dosage: 1 TABLET??TPP YC - PLEASE RECLASSIFY
     Dates: start: 20240729, end: 20240802
  7. BLEPHACLEAN [Concomitant]
     Indication: Ill-defined disorder
     Dosage: 1 APPLICATION(S) UNCHECKED UNITS?TPP YC - PLEASE RECLASSIFY
     Dates: start: 20240809
  8. ASPIRIN [Concomitant]
     Active Substance: ASPIRIN
     Indication: Ill-defined disorder
     Dosage: TAKE ONE DAILY??TPP YC - PLEASE RECLASSIFY
     Dates: start: 20230809
  9. GATALIN [Concomitant]
     Indication: Ill-defined disorder
     Dosage: TAKE ONE DAILY??TPP YC - PLEASE RECLASSIFY
     Dates: start: 20230809
  10. NITROGLYCERIN [Concomitant]
     Active Substance: NITROGLYCERIN
     Indication: Chest pain
     Dosage: TREATMENT OR PROPHYLAXIS OF. CHEST PAIN(ANGINA)...??TPP YC - PLEASE RECLASSIFY
     Dates: start: 20230809
  11. HYLO-TEAR [Concomitant]
     Indication: Ill-defined disorder
     Dosage: USE TO BE TAKEN FOUR TIMES DAILY WHEN REQUIRED ...??TPP YC - PLEASE RECLASSIFY
     Dates: start: 20230809
  12. ISOSORBIDE MONONITRATE [Concomitant]
     Active Substance: ISOSORBIDE MONONITRATE
     Indication: Ill-defined disorder
     Dosage: TAKE ONE AT 8AM AND ONE AT 3PM TO HELP CONTROL ...??TPP YC - PLEASE RECLASSIFY
     Dates: start: 20230809
  13. SIMVASTATIN [Concomitant]
     Active Substance: SIMVASTATIN
     Indication: Blood cholesterol
     Dosage: TAKE ONE AT NIGHT TO LOWER CHOLESTEROL. AVOID G...??TPP YC - PLEASE RECLASSIFY
     Dates: start: 20230809
  14. LORAZEPAM [Concomitant]
     Active Substance: LORAZEPAM
     Indication: Ill-defined disorder
     Dosage: ONE TO BE TAKEN THREE TIMES DAILY??TPP YC - PLEASE RECLASSIFY
     Dates: start: 20230911
  15. MEMANTINE [Concomitant]
     Active Substance: MEMANTINE
     Indication: Ill-defined disorder
     Dosage: TAKE ONE DAILY??TPP YC - PLEASE RECLASSIFY
     Dates: start: 20230911

REACTIONS (2)
  - Musculoskeletal stiffness [Not Recovered/Not Resolved]
  - Peripheral swelling [Not Recovered/Not Resolved]
